FAERS Safety Report 8828446 (Version 2)
Quarter: 2013Q1

REPORT INFORMATION
  Report Type: Spontaneous
  Country: US (occurrence: US)
  Receive Date: 20121005
  Receipt Date: 20130129
  Transmission Date: 20140127
  Serious: Yes (Hospitalization)
  Sender: FDA-Public Use
  Company Number: US-BIOGENIDEC-2012BI041746

PATIENT
  Age: 51 Year
  Sex: Female

DRUGS (2)
  1. AVONEX [Concomitant]
     Indication: MULTIPLE SCLEROSIS
     Route: 030
  2. TYSABRI [Suspect]
     Indication: MULTIPLE SCLEROSIS
     Route: 042
     Dates: start: 20070508, end: 201206

REACTIONS (10)
  - Multiple sclerosis relapse [Not Recovered/Not Resolved]
  - Staphylococcal infection [Recovered/Resolved]
  - Cellulitis [Unknown]
  - Malaise [Recovered/Resolved]
  - Benign neoplasm [Recovered/Resolved]
  - Memory impairment [Not Recovered/Not Resolved]
  - Aphasia [Not Recovered/Not Resolved]
  - Bone cyst [Recovered/Resolved]
  - Exostosis [Recovered/Resolved]
  - Foot deformity [Recovered/Resolved]
